FAERS Safety Report 25073999 (Version 1)
Quarter: 2025Q1

REPORT INFORMATION
  Report Type: Spontaneous
  Country: US (occurrence: US)
  Receive Date: 20250313
  Receipt Date: 20250313
  Transmission Date: 20250408
  Serious: No
  Sender: BRISTOL-MYERS SQUIBB COMPANY
  Company Number: US-BRISTOL-MYERS SQUIBB COMPANY-2025-037366

PATIENT

DRUGS (3)
  1. KENALOG [Suspect]
     Active Substance: TRIAMCINOLONE ACETONIDE
     Indication: Product used for unknown indication
  2. CELESTONE [Suspect]
     Active Substance: BETAMETHASONE
     Indication: Product used for unknown indication
  3. ESTRADIOL ACETATE [Suspect]
     Active Substance: ESTRADIOL ACETATE
     Indication: Product used for unknown indication

REACTIONS (6)
  - Contusion [Unknown]
  - Skin atrophy [Unknown]
  - Skin haemorrhage [Unknown]
  - Eye pain [Unknown]
  - Hypertension [Unknown]
  - Eye irritation [Unknown]
